FAERS Safety Report 9822147 (Version 1)
Quarter: 2014Q1

REPORT INFORMATION
  Report Type: Spontaneous
  Country: JP (occurrence: JP)
  Receive Date: 20140116
  Receipt Date: 20140116
  Transmission Date: 20141002
  Serious: Yes (Life-Threatening, Other)
  Sender: FDA-Public Use
  Company Number: JP-ASTRAZENECA-2014SE03052

PATIENT
  Age: 32 Year
  Sex: Male
  Weight: 62 kg

DRUGS (7)
  1. SEROQUEL [Suspect]
     Route: 048
  2. SEROQUEL [Suspect]
     Route: 048
     Dates: start: 20140106, end: 20140106
  3. PSYCHOTROPIC AGENT [Concomitant]
  4. PSYCHOTROPIC AGENT [Concomitant]
     Dates: start: 20140106, end: 20140106
  5. PSYCHOTROPIC AGENT [Concomitant]
     Dates: start: 20140106, end: 20140106
  6. HYPNOTIC AND SEDATIVE, ANTIANXIETIC [Concomitant]
  7. HYPNOTIC AND SEDATIVE, ANTIANXIETIC [Concomitant]
     Dates: start: 20140106, end: 20140106

REACTIONS (6)
  - Intentional overdose [Unknown]
  - Suicide attempt [Unknown]
  - Self injurious behaviour [Unknown]
  - Dysarthria [Unknown]
  - Somnolence [Unknown]
  - Asthenia [Unknown]
